FAERS Safety Report 7363889-2 (Version None)
Quarter: 2011Q1

REPORT INFORMATION
  Report Type: 
  Country: None (occurrence: None)
  Receive Date: 20110321
  Receipt Date: 20110307
  Transmission Date: 20110831
  Serious: Yes (Other)
  Sender: FDA-Public Use
  Company Number: FR-ROCHE-764440

PATIENT
  Age: 49 Year
  Sex: Male

DRUGS (6)
  1. BEVACIZUMAB [Suspect]
     Indication: RENAL CANCER METASTATIC
     Route: 042
     Dates: start: 20080822, end: 20100212
  2. AMLODIPINE BESYLATE [Concomitant]
     Dates: start: 20100104
  3. JANUVIA [Concomitant]
     Dates: start: 20091201
  4. ESIDRIX [Concomitant]
     Dates: start: 20100104
  5. COVERSYL [Concomitant]
     Dates: start: 20100104
  6. TEMSIROLIMUS [Suspect]
     Indication: RENAL CANCER METASTATIC
     Route: 042
     Dates: start: 20080822

REACTIONS (1)
  - OSTEONECROSIS OF JAW [None]
